FAERS Safety Report 9850991 (Version 2)
Quarter: 2014Q3

REPORT INFORMATION
  Report Type: Spontaneous
  Country: US (occurrence: US)
  Receive Date: 20140128
  Receipt Date: 20140831
  Transmission Date: 20150326
  Serious: Yes (Hospitalization)
  Sender: FDA-Public Use
  Company Number: US-009507513-1401USA012900

PATIENT
  Sex: Female
  Weight: 62.59 kg

DRUGS (1)
  1. NUVARING [Suspect]
     Active Substance: ETHINYL ESTRADIOL\ETONOGESTREL
     Indication: CONTRACEPTION
     Dosage: UNK
     Route: 067
     Dates: start: 201202, end: 20120702

REACTIONS (4)
  - Deep vein thrombosis [Unknown]
  - Headache [Unknown]
  - Panic attack [Unknown]
  - Lichen planus [Recovered/Resolved]

NARRATIVE: CASE EVENT DATE: 20120625
